FAERS Safety Report 11090017 (Version 1)
Quarter: 2015Q2

REPORT INFORMATION
  Report Type: Spontaneous
  Country: DE (occurrence: None)
  Receive Date: 20150501
  Receipt Date: 20150501
  Transmission Date: 20150821
  Serious: Yes (Life-Threatening, Hospitalization)
  Sender: FDA-Public Use
  Company Number: DE-H14001-15-00632

PATIENT
  Age: 74 Year
  Sex: Male
  Weight: 82 kg

DRUGS (9)
  1. IRINOTECAN (IRINOTECAN) (IRINOTECAN) [Suspect]
     Active Substance: IRINOTECAN
     Indication: COLORECTAL CANCER METASTATIC
     Dosage: ON DAY ONE EVERY 14 DAYS (NOT OTHEWISE SPECIFIED)
     Route: 042
     Dates: start: 20130325, end: 20130411
  2. FOLINIC ACID [Suspect]
     Active Substance: LEUCOVORIN
     Indication: COLORECTAL CANCER METASTATIC
     Dosage: ON DAY ONE EVERY 14 DAYS (NOT OTHERWISE SPECIFIED)
     Route: 042
     Dates: start: 20130325, end: 20130411
  3. PLASMA PROTEIN FRACTION (HUMAN) [Concomitant]
     Active Substance: PLASMA PROTEIN FRACTION (HUMAN)
  4. RAMIPRIL. [Concomitant]
     Active Substance: RAMIPRIL
  5. BLINDED STUDY MEDICATION [Suspect]
     Active Substance: INVESTIGATIONAL PRODUCT
     Indication: COLORECTAL CANCER METASTATIC
     Dates: start: 20130325, end: 20130411
  6. SPIRONOLACTON (SPIRONOLACTONE) [Concomitant]
  7. PANTOPRAZOL (PANTOPRAZOLE SODIUM SESQUIHYDRATE) [Concomitant]
     Active Substance: PANTOPRAZOLE SODIUM
  8. 5-FLUOROACIL [Suspect]
     Active Substance: FLUOROURACIL
     Indication: COLORECTAL CANCER METASTATIC
     Dosage: ON DAY ONE EVERY 14 DAYS
     Route: 040
     Dates: start: 20130325, end: 20130411
  9. TOREM [Concomitant]
     Active Substance: TORSEMIDE

REACTIONS (7)
  - Aphasia [None]
  - Transient ischaemic attack [None]
  - Platelet count decreased [None]
  - Blood thyroid stimulating hormone increased [None]
  - General physical health deterioration [None]
  - Confusional state [None]
  - Seizure [None]

NARRATIVE: CASE EVENT DATE: 2013
